FAERS Safety Report 5499452-8 (Version None)
Quarter: 2007Q4

REPORT INFORMATION
  Report Type: 
  Country: None (occurrence: None)
  Receive Date: 20071026
  Receipt Date: 20071024
  Transmission Date: 20080405
  Serious: Yes (Death, Hospitalization, Other)
  Sender: FDA-Public Use
  Company Number: FR-BRISTOL-MYERS SQUIBB COMPANY-13954334

PATIENT
  Age: 75 Year
  Sex: Female

DRUGS (7)
  1. COUMADIN [Suspect]
     Dosage: 22-DEC-07 2MG/D; 25-DEC-07 DECREASED TO 1MG/D AND IT WAS INCREASED TO 2 MG AGAIN.
     Dates: start: 20070103, end: 20070130
  2. CARDENSIEL [Suspect]
     Dates: end: 20070201
  3. LIPANTHYL [Suspect]
     Dates: end: 20070201
  4. STILNOX [Suspect]
     Dates: end: 20070201
  5. COLCHICINE [Suspect]
     Dates: end: 20070201
  6. TOPALGIC [Suspect]
     Dates: end: 20070201
  7. ANTIVITAMIN K [Concomitant]
     Dates: start: 20061222

REACTIONS (3)
  - DEATH [None]
  - HAEMATEMESIS [None]
  - INTERNATIONAL NORMALISED RATIO INCREASED [None]
